FAERS Safety Report 7131178-7 (Version None)
Quarter: 2010Q4

REPORT INFORMATION
  Report Type: 
  Country: None (occurrence: None)
  Receive Date: 20101201
  Receipt Date: 20100628
  Transmission Date: 20110411
  Serious: Yes (Death)
  Sender: FDA-Public Use
  Company Number: DZ-PFIZER INC-2010080292

PATIENT
  Age: 45 Year
  Sex: Male

DRUGS (2)
  1. TAHOR [Suspect]
     Dosage: 80 MG, 1X/DAY
     Dates: start: 20100531, end: 20100603
  2. LOVENOX [Concomitant]
     Dosage: 0.8 ML, 2X/DAY
     Route: 058

REACTIONS (2)
  - ALANINE AMINOTRANSFERASE INCREASED [None]
  - ASPARTATE AMINOTRANSFERASE INCREASED [None]
